FAERS Safety Report 20310758 (Version 6)
Quarter: 2023Q4

REPORT INFORMATION
  Report Type: Report from Study
  Country: US (occurrence: US)
  Receive Date: 20220107
  Receipt Date: 20231214
  Transmission Date: 20240109
  Serious: Yes (Hospitalization)
  Sender: FDA-Public Use
  Company Number: US-SA-SAC20220103001052

PATIENT
  Age: 21 Year
  Sex: Male

DRUGS (5)
  1. CABLIVI [Suspect]
     Active Substance: CAPLACIZUMAB-YHDP
     Indication: Thrombotic thrombocytopenic purpura
     Dosage: 11 MG; QD
     Route: 058
     Dates: start: 20210421
  2. CABLIVI [Suspect]
     Active Substance: CAPLACIZUMAB-YHDP
     Indication: Thrombotic thrombocytopenic purpura
     Dosage: 11 MG; QD
     Route: 058
     Dates: start: 20210421
  3. CABLIVI [Suspect]
     Active Substance: CAPLACIZUMAB-YHDP
     Indication: Thrombotic thrombocytopenic purpura
     Dosage: 11 MG; QD
     Route: 058
     Dates: start: 20210421
  4. CABLIVI [Suspect]
     Active Substance: CAPLACIZUMAB-YHDP
     Indication: Thrombotic thrombocytopenic purpura
     Dosage: 11 MG; QD
     Route: 058
     Dates: start: 20210421
  5. RITUXAN [Suspect]
     Active Substance: RITUXIMAB
     Dosage: UNK

REACTIONS (3)
  - Platelet count decreased [Unknown]
  - Drug hypersensitivity [Unknown]
  - ADAMTS13 activity abnormal [Unknown]
